FAERS Safety Report 9267980 (Version 2)
Quarter: 2014Q3

REPORT INFORMATION
  Report Type: Report from Study
  Country: US (occurrence: US)
  Receive Date: 20130502
  Receipt Date: 20140819
  Transmission Date: 20150326
  Serious: Yes (Hospitalization, Other)
  Sender: FDA-Public Use
  Company Number: US-ALEXION-A201201219

PATIENT
  Age: 55 Year
  Sex: Female

DRUGS (1)
  1. SOLIRIS [Suspect]
     Active Substance: ECULIZUMAB
     Indication: HAEMOLYTIC URAEMIC SYNDROME
     Dosage: UNK, Q2W
     Route: 042

REACTIONS (13)
  - Dehydration [Recovered/Resolved]
  - Blood pressure decreased [Unknown]
  - Asthenia [Unknown]
  - Haemoglobin decreased [Recovered/Resolved]
  - Abdominal pain [Recovered/Resolved]
  - Dysphagia [Unknown]
  - Jaundice [Unknown]
  - Chromaturia [Unknown]
  - Fatigue [Unknown]
  - Dyspnoea [Unknown]
  - Packed red blood cell transfusion [Unknown]
  - Unevaluable event [Unknown]
  - Blood pressure immeasurable [Recovered/Resolved]

NARRATIVE: CASE EVENT DATE: 20120614
